FAERS Safety Report 6984029-5 (Version None)
Quarter: 2010Q3

REPORT INFORMATION
  Report Type: 
  Country: None (occurrence: None)
  Receive Date: 20100915
  Receipt Date: 20090521
  Transmission Date: 20110219
  Serious: No
  Sender: FDA-Public Use
  Company Number: US-WYE-H09273709

PATIENT
  Sex: Female

DRUGS (7)
  1. PRISTIQ [Suspect]
     Indication: MAJOR DEPRESSION
     Route: 048
     Dates: start: 20080805, end: 20090512
  2. PRISTIQ [Suspect]
     Indication: BIPOLAR DISORDER
  3. MAXALT [Concomitant]
  4. ADDERALL XR 10 [Concomitant]
     Indication: ATTENTION DEFICIT/HYPERACTIVITY DISORDER
     Dosage: ^VARYING DOSES^
     Route: 048
     Dates: start: 20010101
  5. AMBIEN CR [Concomitant]
  6. ABILIFY [Concomitant]
     Indication: BIPOLAR DISORDER
     Route: 048
     Dates: start: 20080301, end: 20090401
  7. LAMICTAL [Concomitant]
     Indication: BIPOLAR DISORDER
     Route: 048
     Dates: start: 20010101

REACTIONS (1)
  - VISUAL ACUITY REDUCED [None]
